FAERS Safety Report 23970510 (Version 1)
Quarter: 2024Q2

REPORT INFORMATION
  Report Type: Spontaneous
  Country: US (occurrence: US)
  Receive Date: 20240613
  Receipt Date: 20240613
  Transmission Date: 20240716
  Serious: No
  Sender: FDA-Public Use
  Company Number: US-AMGEN-USASP2024114419

PATIENT
  Age: 65 Year
  Sex: Male

DRUGS (2)
  1. TEPEZZA [Suspect]
     Active Substance: TEPROTUMUMAB-TRBW
     Indication: Endocrine ophthalmopathy
     Dosage: UNK, FIRST INFUSION
     Route: 042
     Dates: start: 20240515
  2. TEPEZZA [Suspect]
     Active Substance: TEPROTUMUMAB-TRBW
     Dosage: UNK, SECOND INFUSION
     Route: 042

REACTIONS (3)
  - Fatigue [Unknown]
  - Weight decreased [Unknown]
  - Muscle spasms [Unknown]

NARRATIVE: CASE EVENT DATE: 20240101
